FAERS Safety Report 4829988-1 (Version None)
Quarter: 2005Q4

REPORT INFORMATION
  Report Type: 
  Country: None (occurrence: None)
  Receive Date: 20051117
  Receipt Date: 20051109
  Transmission Date: 20060501
  Serious: Yes (Hospitalization)
  Sender: FDA-Public Use
  Company Number: JP-JNJFOC-20050903644

PATIENT
  Sex: Male

DRUGS (2)
  1. ITRIZOLE [Suspect]
     Indication: NAIL TINEA
     Route: 048
     Dates: start: 20050811, end: 20050817
  2. BUTENAFINE HYDROCHLORIDE [Suspect]
     Indication: NAIL TINEA
     Route: 061
     Dates: start: 20050513

REACTIONS (4)
  - OCULAR HYPERAEMIA [None]
  - PLATELET COUNT DECREASED [None]
  - PYREXIA [None]
  - TOXIC SKIN ERUPTION [None]
